FAERS Safety Report 20791817 (Version 1)
Quarter: 2022Q2

REPORT INFORMATION
  Report Type: Spontaneous
  Country: US (occurrence: US)
  Receive Date: 20220505
  Receipt Date: 20220505
  Transmission Date: 20220721
  Serious: Yes (Other)
  Sender: FDA-Public Use
  Company Number: US-PFIZER INC-202200643176

PATIENT

DRUGS (2)
  1. TESSALON [Suspect]
     Active Substance: BENZONATATE
     Indication: Cough
     Dosage: UNK
  2. TESSALON [Suspect]
     Active Substance: BENZONATATE
     Indication: Hypersensitivity

REACTIONS (1)
  - Cerebrovascular accident [Unknown]
